FAERS Safety Report 8583355-6 (Version None)
Quarter: 2012Q3

REPORT INFORMATION
  Report Type: 
  Country: None (occurrence: None)
  Receive Date: 20120809
  Receipt Date: 20120802
  Transmission Date: 20120928
  Serious: Yes (Other)
  Sender: FDA-Public Use
  Company Number: PHHY2012NL068561

PATIENT

DRUGS (2)
  1. EVEROLIMUS [Suspect]
     Dosage: 5 MG, BID
     Route: 048
  2. CAPECITABINE [Suspect]
     Dosage: 1000 MG/M2, BID

REACTIONS (3)
  - NEOPLASM PROGRESSION [None]
  - NEOPLASM MALIGNANT [None]
  - HYPERCALCAEMIA [None]
